FAERS Safety Report 4317465-6 (Version None)
Quarter: 2004Q1

REPORT INFORMATION
  Report Type: 
  Country: None (occurrence: None)
  Receive Date: 20040312
  Receipt Date: 20040303
  Transmission Date: 20041129
  Serious: Yes (Other)
  Sender: FDA-Public Use
  Company Number: 22909 (0)

PATIENT
  Age: 38 Year
  Sex: Female

DRUGS (1)
  1. ALDARA [Suspect]
     Indication: CONDYLOMA ACUMINATUM
     Dosage: TOPICAL
     Route: 061
     Dates: start: 20040121, end: 20040123

REACTIONS (7)
  - APPLICATION SITE BURNING [None]
  - APPLICATION SITE OEDEMA [None]
  - APPLICATION SITE ULCER [None]
  - BACK PAIN [None]
  - LYMPHADENOPATHY [None]
  - VAGINAL BURNING SENSATION [None]
  - VAGINAL ULCERATION [None]
